FAERS Safety Report 8365106-3 (Version None)
Quarter: 2012Q1

REPORT INFORMATION
  Report Type: 
  Country: None (occurrence: None)
  Receive Date: 20120323
  Receipt Date: 20111115
  Transmission Date: 20120608
  Serious: Yes (Hospitalization)
  Sender: FDA-Public Use
  Company Number: 163-21880-11112383

PATIENT
  Age: 54 Year
  Sex: Male

DRUGS (5)
  1. REVLIMID [Suspect]
     Indication: MULTIPLE MYELOMA
     Dosage: 25 MG, 1 IN 1 D, PO
     Route: 048
     Dates: start: 20110330, end: 20111028
  2. LOVENOX [Concomitant]
  3. WARFARIN SODIUM [Concomitant]
  4. HYDROCODONE W/APAP (PROCET) [Concomitant]
  5. MORPHINE SULFATE INJ [Concomitant]

REACTIONS (2)
  - THROMBOSIS [None]
  - PULMONARY THROMBOSIS [None]
